FAERS Safety Report 9746278 (Version 1)
Quarter: 2013Q4

REPORT INFORMATION
  Report Type: Spontaneous
  Country: US (occurrence: None)
  Receive Date: 20131209
  Receipt Date: 20131209
  Transmission Date: 20140711
  Serious: No
  Sender: FDA-Public Use
  Company Number: None

PATIENT
  Age: 39 Year
  Sex: Male
  Weight: 83.92 kg

DRUGS (1)
  1. MONTELUKAST 10 MG [Suspect]
     Indication: ASTHMA
     Route: 048
     Dates: start: 20131201, end: 20131205

REACTIONS (2)
  - Anger [None]
  - Mental disorder [None]
